FAERS Safety Report 10436110 (Version 2)
Quarter: 2015Q1

REPORT INFORMATION
  Report Type: Report from Study
  Country: JP (occurrence: JP)
  Receive Date: 20140908
  Receipt Date: 20150325
  Transmission Date: 20150720
  Serious: Yes (Other)
  Sender: FDA-Public Use
  Company Number: JP-SHIONOGI, INC-2014000857

PATIENT
  Age: 10 Year
  Sex: Male
  Weight: 24 kg

DRUGS (22)
  1. FUNGUARD [Suspect]
     Active Substance: MICAFUNGIN SODIUM
     Indication: FEBRILE NEUTROPENIA
     Route: 065
     Dates: start: 20140710, end: 20140714
  2. ACICLOVIR [Suspect]
     Active Substance: ACYCLOVIR
     Indication: ORAL HERPES
     Dosage: 250 MG, TID
     Route: 065
     Dates: start: 20140711, end: 20140715
  3. BAKTAR [Concomitant]
     Active Substance: SULFAMETHOXAZOLE\TRIMETHOPRIM
     Indication: PROPHYLAXIS
     Dosage: UNK
     Route: 048
  4. LASIX [Concomitant]
     Active Substance: FUROSEMIDE
     Indication: OLIGURIA
     Dosage: UNK UNK, PRN
     Route: 065
     Dates: start: 20140708, end: 20140709
  5. COCARL [Concomitant]
     Active Substance: ACETAMINOPHEN
     Indication: FEBRILE NEUTROPENIA
     Dosage: UNK UNK, PRN
     Route: 048
     Dates: start: 20140707, end: 20140708
  6. AZUNOL                             /00317302/ [Concomitant]
     Indication: DERMATITIS CONTACT
     Dosage: QS
     Route: 065
     Dates: start: 20140709, end: 20140718
  7. TEICOPLANIN [Suspect]
     Active Substance: TEICOPLANIN
     Indication: NEUTROPENIA
     Route: 065
     Dates: start: 20140708, end: 20140714
  8. PHYSIO 140 [Concomitant]
     Indication: HYPONATRAEMIA
     Route: 065
     Dates: start: 20140709, end: 20140715
  9. LOPERAMIDE [Concomitant]
     Active Substance: LOPERAMIDE
     Indication: ENTEROCOLITIS
     Route: 048
     Dates: start: 20140710, end: 20140718
  10. DIFLUCAN [Concomitant]
     Active Substance: FLUCONAZOLE
     Indication: FEBRILE NEUTROPENIA
     Route: 048
     Dates: start: 20140708, end: 20140709
  11. POLARAMINE [Concomitant]
     Active Substance: DEXCHLORPHENIRAMINE MALEATE
     Indication: URTICARIA
     Dosage: UNK UNK, PRN
     Route: 042
     Dates: start: 20140711, end: 20140711
  12. HYALURONATE NA [Concomitant]
     Indication: CONJUNCTIVITIS
     Route: 065
     Dates: start: 20140712, end: 20140714
  13. CEFPIROME SULFATE [Suspect]
     Active Substance: CEFPIROME SULFATE
     Indication: FEBRILE NEUTROPENIA
     Route: 065
     Dates: start: 20140707, end: 20140709
  14. LEVOFLOXACIN HEMIHYDRATE [Concomitant]
     Active Substance: LEVOFLOXACIN
     Indication: CONJUNCTIVITIS
     Dosage: UNK UNK, TID
     Route: 065
     Dates: start: 20140712, end: 20140714
  15. ACETAMINOPHEN. [Suspect]
     Active Substance: ACETAMINOPHEN
     Indication: FEBRILE NEUTROPENIA
     Dosage: UNK UNK, PRN
     Route: 065
     Dates: start: 20140709, end: 20140712
  16. NEUTROGIN [Concomitant]
     Active Substance: LENOGRASTIM
     Indication: FEBRILE NEUTROPENIA
     Route: 065
     Dates: start: 20140707, end: 20140715
  17. FINIBAX [Suspect]
     Active Substance: DORIPENEM MONOHYDRATE
     Indication: FEBRILE NEUTROPENIA
     Route: 041
     Dates: start: 20140709, end: 20140716
  18. POTASSIUM CHLORIDE. [Concomitant]
     Active Substance: POTASSIUM CHLORIDE
     Indication: HYPOKALAEMIA
     Route: 065
     Dates: start: 20140709, end: 20140715
  19. MEDICON                            /00048102/ [Concomitant]
     Indication: UPPER RESPIRATORY TRACT INFLAMMATION
     Route: 048
     Dates: start: 20140708, end: 20140718
  20. ADSORBIN [Concomitant]
     Indication: ENTEROCOLITIS
     Route: 048
     Dates: start: 20140709, end: 20140718
  21. TEICOPLANIN [Suspect]
     Active Substance: TEICOPLANIN
     Indication: SEPSIS
     Route: 065
     Dates: end: 20140630
  22. LOPERAMIDE [Concomitant]
     Active Substance: LOPERAMIDE
     Dosage: UNK UNK, PRN
     Route: 048
     Dates: start: 20140709, end: 20140718

REACTIONS (6)
  - Urticaria [Recovered/Resolved]
  - Amylase increased [Recovered/Resolved]
  - Conjunctivitis [Recovered/Resolved]
  - Cheilitis [Recovered/Resolved]
  - Hepatic function abnormal [Recovered/Resolved]
  - Blood lactate dehydrogenase increased [Recovering/Resolving]

NARRATIVE: CASE EVENT DATE: 20140711
